FAERS Safety Report 23604061 (Version 1)
Quarter: 2024Q1

REPORT INFORMATION
  Report Type: Report from Study
  Country: DE (occurrence: DE)
  Receive Date: 20240307
  Receipt Date: 20240307
  Transmission Date: 20240410
  Serious: Yes (Hospitalization, Other)
  Sender: FDA-Public Use
  Company Number: DE-ABBVIE-5659538

PATIENT
  Sex: Female

DRUGS (12)
  1. CARBIDOPA\LEVODOPA [Suspect]
     Active Substance: CARBIDOPA\LEVODOPA
     Indication: Parkinson^s disease
     Dosage: MD: 2.2 ML; CRD: 2.3 ML/H; CRN: 0.8 ML/H; ED: 0.7 ML
     Route: 050
     Dates: start: 20080204
  2. CARBIDOPA\LEVODOPA [Suspect]
     Active Substance: CARBIDOPA\LEVODOPA
     Dosage: MD: 2.5 ML, CRD: 2.2 ML/H, CRN: 0.8 ML/H, ED: 0.7 ML
     Route: 050
     Dates: start: 2023
  3. CARBIDOPA\LEVODOPA [Suspect]
     Active Substance: CARBIDOPA\LEVODOPA
     Dosage: MD: 3 ML, CRD: 2 ML/H, CRN: 0.8 ML/H
     Route: 050
  4. SERTRALINE HYDROCHLORIDE [Concomitant]
     Active Substance: SERTRALINE HYDROCHLORIDE
     Indication: Product used for unknown indication
  5. AMANTADINE [Concomitant]
     Active Substance: AMANTADINE
     Indication: Product used for unknown indication
     Dates: end: 202402
  6. FOLIC ACID [Concomitant]
     Active Substance: FOLIC ACID
     Indication: Product used for unknown indication
  7. RIVASTIGMINE ACINO [Concomitant]
     Indication: Product used for unknown indication
  8. METAMIZOLE [Concomitant]
     Active Substance: METAMIZOLE
     Indication: Product used for unknown indication
     Dosage: AS NEEDED
  9. VITAMIN D3 [Concomitant]
     Active Substance: CHOLECALCIFEROL
     Indication: Product used for unknown indication
  10. LEVODOPA RPH [Concomitant]
     Indication: Parkinson^s disease
     Dosage: 100/25 MG?AS NEEDED IN CASE OF PUMP-DISLOCATION
  11. POLYETHYLENE GLYCOLS [Concomitant]
     Active Substance: POLYETHYLENE GLYCOLS
     Indication: Product used for unknown indication
  12. QUETIAPINE PUREN [Concomitant]
     Indication: Product used for unknown indication
     Dosage: AS NEEDED

REACTIONS (17)
  - Device dislocation [Recovered/Resolved]
  - Joint injury [Unknown]
  - Movement disorder [Unknown]
  - Joint injury [Unknown]
  - Depression [Unknown]
  - On and off phenomenon [Unknown]
  - Dyskinesia [Unknown]
  - Atrioventricular block first degree [Unknown]
  - Traumatic fracture [Unknown]
  - Hyperkalaemia [Unknown]
  - Polyneuropathy [Not Recovered/Not Resolved]
  - Pelvic fracture [Unknown]
  - Incorrect route of product administration [Recovered/Resolved]
  - Pulmonary embolism [Unknown]
  - Device dislocation [Recovered/Resolved]
  - Dysphagia [Unknown]
  - Avulsion fracture [Unknown]

NARRATIVE: CASE EVENT DATE: 20210101
